FAERS Safety Report 9163011 (Version 2)
Quarter: 2013Q2

REPORT INFORMATION
  Report Type: Spontaneous
  Country: US (occurrence: US)
  Receive Date: 20130314
  Receipt Date: 20130507
  Transmission Date: 20140414
  Serious: Yes (Other)
  Sender: FDA-Public Use
  Company Number: PHHY2013US022306

PATIENT
  Age: 30 Year
  Sex: 0

DRUGS (2)
  1. LORAZEPAM [Suspect]
     Dosage: 4 MG, UNK
     Route: 030
  2. OLANZAPINE [Interacting]
     Indication: AGITATION
     Dosage: 20 MG, UNK
     Route: 030

REACTIONS (2)
  - Hypoxia [Unknown]
  - Oxygen saturation decreased [Unknown]
